FAERS Safety Report 6583228-4 (Version None)
Quarter: 2010Q1

REPORT INFORMATION
  Report Type: 
  Country: None (occurrence: None)
  Receive Date: 20100125
  Receipt Date: 20091103
  Transmission Date: 20100710
  Serious: Yes (Other)
  Sender: FDA-Public Use
  Company Number: 2009BI032899

PATIENT
  Age: 45 Year
  Sex: Female

DRUGS (5)
  1. TYSABRI [Suspect]
     Indication: MULTIPLE SCLEROSIS
     Dosage: 300 MG;QM;IV
     Route: 042
     Dates: start: 20070122
  2. FENTANYL [Concomitant]
  3. OPANA [Concomitant]
  4. TOPAMAX [Concomitant]
  5. PREV MEDS [Concomitant]

REACTIONS (6)
  - ARTHRITIS [None]
  - DEPRESSION [None]
  - MEMORY IMPAIRMENT [None]
  - MULTIPLE SCLEROSIS RELAPSE [None]
  - SPINAL COLUMN STENOSIS [None]
  - SUICIDE ATTEMPT [None]
